FAERS Safety Report 6069733-8 (Version None)
Quarter: 2009Q1

REPORT INFORMATION
  Report Type: 
  Country: None (occurrence: None)
  Receive Date: 20090209
  Receipt Date: 20090129
  Transmission Date: 20090719
  Serious: Yes (Life-Threatening, Hospitalization, Other)
  Sender: FDA-Public Use
  Company Number: US-AMGEN-99120480

PATIENT
  Sex: Female
  Weight: 23.5 kg

DRUGS (5)
  1. ENBREL [Suspect]
     Indication: JUVENILE ARTHRITIS
     Route: 058
     Dates: start: 19990325
  2. ENBREL [Suspect]
  3. IBUPROFEN [Concomitant]
     Dates: start: 19960101, end: 19990905
  4. FAMOTIDINE [Concomitant]
     Dates: start: 19990826, end: 19990905
  5. ZYRTEC [Concomitant]

REACTIONS (11)
  - ARTHRITIS [None]
  - DEHYDRATION [None]
  - DIABETIC KETOACIDOSIS [None]
  - DISSEMINATED INTRAVASCULAR COAGULATION [None]
  - OSTEOPENIA [None]
  - POLLAKIURIA [None]
  - TYPE 1 DIABETES MELLITUS [None]
  - VERTIGO [None]
  - VIRAL INFECTION [None]
  - VISUAL IMPAIRMENT [None]
  - VOMITING [None]
